FAERS Safety Report 11845188 (Version 1)
Quarter: 2015Q4

REPORT INFORMATION
  Report Type: Spontaneous
  Country: JP (occurrence: JP)
  Receive Date: 20151217
  Receipt Date: 20151217
  Transmission Date: 20160305
  Serious: Yes (Other)
  Sender: FDA-Public Use
  Company Number: JP-PFIZER INC-2015433481

PATIENT
  Age: 68 Year

DRUGS (2)
  1. REDONINE [Concomitant]
  2. LYRICA [Suspect]
     Active Substance: PREGABALIN
     Indication: FIBROMYALGIA
     Dosage: 25 MG IN THE MORNING AND 75 MG IN THE EVENING
     Route: 048

REACTIONS (7)
  - Mobility decreased [Unknown]
  - Asthenia [Unknown]
  - Nausea [Unknown]
  - Feeding disorder [Unknown]
  - Somnolence [Unknown]
  - Vomiting [Unknown]
  - Drug ineffective [Unknown]
